FAERS Safety Report 8520419-7 (Version None)
Quarter: 2012Q3

REPORT INFORMATION
  Report Type: 
  Country: None (occurrence: None)
  Receive Date: 20120719
  Receipt Date: 20120713
  Transmission Date: 20120928
  Serious: Yes (Other)
  Sender: FDA-Public Use
  Company Number: DE-ASTELLAS-2012EU005110

PATIENT
  Sex: Male
  Weight: 70 kg

DRUGS (10)
  1. MICAFUNGIN INJECTION [Suspect]
     Indication: PROPHYLAXIS
     Dosage: 50 MG, UNKNOWN/D
     Route: 065
     Dates: end: 20111223
  2. ALLOPURINOL [Concomitant]
     Dosage: UNK
     Route: 065
     Dates: start: 20111129, end: 20111205
  3. CYCLOSPORINE [Concomitant]
     Dosage: UNK
     Route: 065
     Dates: start: 20111205
  4. ACYCLOVIR [Concomitant]
     Dosage: UNK
     Route: 065
     Dates: start: 20111205
  5. ONDANSETRON [Concomitant]
     Dosage: UNK
     Route: 065
     Dates: start: 20111129, end: 20111206
  6. MYCOPHENOLATE MOFETIL [Concomitant]
     Dosage: UNK
     Route: 065
     Dates: start: 20111206
  7. DEXAMETHASONE [Concomitant]
     Dosage: UNK
     Route: 065
     Dates: start: 20111129, end: 20111206
  8. PREDNISONE [Concomitant]
     Dosage: UNK
     Route: 065
     Dates: start: 20111206, end: 20111206
  9. URSODIOL [Concomitant]
     Dosage: UNK
     Route: 065
     Dates: start: 20111129
  10. AMLODIPINE BESYLATE [Concomitant]
     Dosage: UNK
     Route: 065
     Dates: start: 20111208, end: 20111209

REACTIONS (4)
  - PALMAR-PLANTAR ERYTHRODYSAESTHESIA SYNDROME [None]
  - PYREXIA [None]
  - MUCOSAL INFLAMMATION [None]
  - BRADYCARDIA [None]
